FAERS Safety Report 5015977-3 (Version None)
Quarter: 2006Q2

REPORT INFORMATION
  Report Type: 
  Country: None (occurrence: None)
  Receive Date: 20060414
  Receipt Date: 20060306
  Transmission Date: 20061013
  Serious: No
  Sender: FDA-Public Use
  Company Number: 2006SP001143

PATIENT
  Age: 57 Year
  Sex: Female
  Weight: 70.3075 kg

DRUGS (7)
  1. LUNESTA [Suspect]
     Indication: INSOMNIA
     Dosage: SEE IMAGE
     Route: 048
     Dates: start: 20050101, end: 20050101
  2. LUNESTA [Suspect]
     Indication: INSOMNIA
     Dosage: SEE IMAGE
     Route: 048
     Dates: start: 20050101, end: 20050101
  3. LUNESTA [Suspect]
     Indication: INSOMNIA
     Dosage: SEE IMAGE
     Route: 048
     Dates: start: 20050901, end: 20050101
  4. LEXAPRO [Concomitant]
  5. XANAX [Concomitant]
  6. PREVACID [Concomitant]
  7. AMBIEN [Concomitant]

REACTIONS (1)
  - INSOMNIA [None]
